FAERS Safety Report 14992190 (Version 1)
Quarter: 2018Q2

REPORT INFORMATION
  Report Type: Spontaneous
  Country: DE (occurrence: DE)
  Receive Date: 20180608
  Receipt Date: 20180608
  Transmission Date: 20180711
  Serious: Yes (Hospitalization)
  Sender: FDA-Public Use
  Company Number: DE-TEVA-2018-DE-902871

PATIENT
  Age: 75 Year
  Sex: Male

DRUGS (21)
  1. ATROVENT [Concomitant]
     Active Substance: IPRATROPIUM BROMIDE
     Dosage: 2 MILLIGRAM DAILY;
     Route: 055
  2. FLUTICASONE W/FORMOTEROL [Concomitant]
     Dosage: 10|250 ?G
     Route: 055
  3. TAMSULOSIN [Concomitant]
     Active Substance: TAMSULOSIN
     Dosage: .4 MILLIGRAM DAILY;
     Route: 065
  4. DIAZEPAM. [Concomitant]
     Active Substance: DIAZEPAM
     Dosage: 10 MG/ML
     Route: 065
  5. MOVICOL AROMAFREI [Concomitant]
     Route: 065
  6. LEVEMIR [Concomitant]
     Active Substance: INSULIN DETEMIR
     Route: 065
  7. METOPROLOL. [Suspect]
     Active Substance: METOPROLOL
     Dosage: 190 MILLIGRAM DAILY;
     Route: 065
  8. DIGITOXIN [Concomitant]
     Active Substance: DIGITOXIN
     Dosage: .07 MILLIGRAM DAILY;
     Route: 065
  9. CINEOL [Concomitant]
     Dosage: 400 MILLIGRAM DAILY;
     Route: 065
  10. SPIRIVA [Concomitant]
     Active Substance: TIOTROPIUM BROMIDE MONOHYDRATE
     Dosage: 36 MICROGRAM DAILY;
     Route: 055
  11. KALINOR [Concomitant]
     Route: 065
  12. XIPAMID [Suspect]
     Active Substance: XIPAMIDE
     Dosage: 40 MILLIGRAM DAILY;
     Route: 065
  13. FENTANYL. [Concomitant]
     Active Substance: FENTANYL
     Dosage: 0.0125 ?/H, WECHSEL ALLE 3 D
     Route: 062
  14. PANTOPRAZOL [Concomitant]
     Active Substance: PANTOPRAZOLE SODIUM
     Dosage: 40 MILLIGRAM DAILY;
     Route: 065
  15. FUROSEMID [Suspect]
     Active Substance: FUROSEMIDE
     Dosage: 40 MILLIGRAM DAILY;
     Route: 065
  16. METAMIZOL [Concomitant]
     Active Substance: METAMIZOLE SODIUM
     Dosage: 500 MG/ML, 20-20-20-20
     Route: 065
  17. ROFLUMILAST. [Concomitant]
     Active Substance: ROFLUMILAST
     Dosage: .5 MILLIGRAM DAILY;
     Route: 065
  18. ELIQUIS [Concomitant]
     Active Substance: APIXABAN
     Dosage: 5 MILLIGRAM DAILY;
     Route: 065
  19. MIRTAZAPIN [Concomitant]
     Active Substance: MIRTAZAPINE
     Dosage: 30 MILLIGRAM DAILY;
     Route: 065
  20. HYDROMORPHONE [Suspect]
     Active Substance: HYDROMORPHONE
     Dosage: 16 MILLIGRAM DAILY;
     Route: 065
  21. NOVORAPID [Concomitant]
     Active Substance: INSULIN ASPART
     Route: 065

REACTIONS (4)
  - Tachypnoea [Unknown]
  - Drug prescribing error [Unknown]
  - Hypokalaemia [Unknown]
  - Dyspnoea [Unknown]
